FAERS Safety Report 15028943 (Version 1)
Quarter: 2018Q2

REPORT INFORMATION
  Report Type: Spontaneous
  Country: FR (occurrence: FR)
  Receive Date: 20180619
  Receipt Date: 20180619
  Transmission Date: 20180711
  Serious: Yes (Hospitalization)
  Sender: FDA-Public Use
  Company Number: FR-PFIZER INC-2018240531

PATIENT
  Age: 17 Year
  Sex: Female
  Weight: 67 kg

DRUGS (2)
  1. XALKORI [Suspect]
     Active Substance: CRIZOTINIB
     Dosage: 600 MG, 1X/DAY
     Route: 048
     Dates: start: 20161014, end: 20170102
  2. XALKORI [Suspect]
     Active Substance: CRIZOTINIB
     Indication: LUNG CARCINOMA CELL TYPE UNSPECIFIED STAGE IV
     Dosage: 500 MG, 1X/DAY
     Route: 048
     Dates: start: 20160808, end: 20161013

REACTIONS (3)
  - Hyperbilirubinaemia [Recovering/Resolving]
  - Hepatitis [Recovered/Resolved]
  - Rhabdomyolysis [Recovering/Resolving]

NARRATIVE: CASE EVENT DATE: 20170101
